FAERS Safety Report 16362201 (Version 1)
Quarter: 2019Q2

REPORT INFORMATION
  Report Type: Spontaneous
  Country: BR (occurrence: BR)
  Receive Date: 20190528
  Receipt Date: 20190528
  Transmission Date: 20190711
  Serious: Yes (Hospitalization)
  Sender: FDA-Public Use
  Company Number: BR-SA-2019SA139346

PATIENT
  Sex: Male

DRUGS (1)
  1. CEPACOL [Suspect]
     Active Substance: BENZOCAINE

REACTIONS (8)
  - Condition aggravated [Unknown]
  - Burning sensation [Unknown]
  - Pharyngitis [Unknown]
  - Pyrexia [Unknown]
  - Hypersensitivity [Unknown]
  - Blood pressure increased [Unknown]
  - Erythema [Unknown]
  - Inflammation [Unknown]
